FAERS Safety Report 8797992 (Version 2)
Quarter: 2015Q1

REPORT INFORMATION
  Report Type: Report from Study
  Country: US (occurrence: US)
  Receive Date: 20120919
  Receipt Date: 20150304
  Transmission Date: 20150721
  Serious: Yes (Death)
  Sender: FDA-Public Use
  Company Number: US-ROCHE-1098291

PATIENT
  Sex: Male

DRUGS (10)
  1. BENADRYL [Concomitant]
     Active Substance: DIPHENHYDRAMINE HYDROCHLORIDE
     Route: 065
  2. AVASTIN [Suspect]
     Active Substance: BEVACIZUMAB
     Indication: MALIGNANT MELANOMA
     Route: 042
  3. DECADRON [Concomitant]
     Active Substance: DEXAMETHASONE
     Route: 065
  4. TAXOL [Concomitant]
     Active Substance: PACLITAXEL
     Route: 042
  5. BENADRYL [Concomitant]
     Active Substance: DIPHENHYDRAMINE HYDROCHLORIDE
     Route: 065
  6. CARBOPLATIN. [Concomitant]
     Active Substance: CARBOPLATIN
     Route: 042
  7. PEPCID [Concomitant]
     Active Substance: FAMOTIDINE
     Route: 042
  8. ZOMETA [Concomitant]
     Active Substance: ZOLEDRONIC ACID
     Route: 042
  9. NEUPOGEN [Concomitant]
     Active Substance: FILGRASTIM
     Route: 065
  10. ALOXI [Concomitant]
     Active Substance: PALONOSETRON HYDROCHLORIDE
     Route: 042

REACTIONS (9)
  - Death [Fatal]
  - Neutrophil count decreased [Unknown]
  - Phlebitis [Unknown]
  - Bone pain [Unknown]
  - Alopecia [Unknown]
  - Chest pain [Unknown]
  - Fatigue [Unknown]
  - Pain in extremity [Unknown]
  - Vomiting [Unknown]
